FAERS Safety Report 7749338-0 (Version None)
Quarter: 2011Q3

REPORT INFORMATION
  Report Type: 
  Country: None (occurrence: None)
  Receive Date: 20110908
  Receipt Date: 20110829
  Transmission Date: 20111222
  Serious: Yes (Hospitalization, Disabling)
  Sender: FDA-Public Use
  Company Number: 2011SP032521

PATIENT
  Age: 67 Year
  Sex: Female
  Weight: 75 kg

DRUGS (4)
  1. DESLORATADINE [Suspect]
     Indication: ASTHMA
     Dosage: 5 MG;QPM
     Dates: start: 20110523, end: 20110603
  2. SERETIDE [Concomitant]
  3. SINGULAIR [Concomitant]
  4. AIROMIR /00139501/ [Concomitant]

REACTIONS (5)
  - FEMORAL NECK FRACTURE [None]
  - BALANCE DISORDER [None]
  - MALAISE [None]
  - DECREASED ACTIVITY [None]
  - FALL [None]
